FAERS Safety Report 6569098-9 (Version None)
Quarter: 2010Q1

REPORT INFORMATION
  Report Type: 
  Country: None (occurrence: None)
  Receive Date: 20100203
  Receipt Date: 20100129
  Transmission Date: 20100710
  Serious: Yes (Other)
  Sender: FDA-Public Use
  Company Number: ES-PFIZER INC-2009254163

PATIENT
  Age: 28 Year
  Sex: Female
  Weight: 65 kg

DRUGS (4)
  1. TOVIAZ [Suspect]
     Indication: NEUROGENIC BLADDER
     Dosage: 8 MG, 1X/DAY
     Route: 048
     Dates: start: 20090127, end: 20090302
  2. LIORESAL ^NOVARTIS^ [Concomitant]
     Dosage: 10 MG, UNK
     Route: 048
     Dates: start: 20070101
  3. ESCITALOPRAM [Concomitant]
     Dosage: 20 MG, UNK
     Route: 048
     Dates: start: 20080101
  4. TRANKIMAZIN [Concomitant]
     Dosage: UNK
     Route: 048
     Dates: start: 20080201

REACTIONS (1)
  - CYANOSIS [None]
